FAERS Safety Report 16150813 (Version 1)
Quarter: 2019Q2

REPORT INFORMATION
  Report Type: Spontaneous
  Country: US (occurrence: US)
  Receive Date: 20190402
  Receipt Date: 20190402
  Transmission Date: 20190711
  Serious: No
  Sender: FDA-Public Use
  Company Number: US-SA-2019SA088014

PATIENT

DRUGS (6)
  1. PLAQUENIL [Suspect]
     Active Substance: HYDROXYCHLOROQUINE SULFATE
  2. ORENCIA [Suspect]
     Active Substance: ABATACEPT
  3. HUMIRA [Suspect]
     Active Substance: ADALIMUMAB
     Indication: RHEUMATOID ARTHRITIS
  4. ENBREL [Suspect]
     Active Substance: ETANERCEPT
  5. METHOTREXATE. [Suspect]
     Active Substance: METHOTREXATE
  6. LEFLUNOMIDE. [Suspect]
     Active Substance: LEFLUNOMIDE

REACTIONS (1)
  - Therapeutic product effect decreased [Unknown]
